FAERS Safety Report 13706784 (Version 2)
Quarter: 2017Q3

REPORT INFORMATION
  Report Type: Spontaneous
  Country: US (occurrence: US)
  Receive Date: 20170630
  Receipt Date: 20170920
  Transmission Date: 20171127
  Serious: No
  Sender: FDA-Public Use
  Company Number: US-JNJFOC-20170610927

PATIENT
  Age: 50 Year
  Sex: Male
  Weight: 78.47 kg

DRUGS (2)
  1. COGENTIN [Concomitant]
     Active Substance: BENZTROPINE MESYLATE
     Indication: EXTRAPYRAMIDAL DISORDER
     Route: 065
     Dates: start: 20170221
  2. RISPERDAL CONSTA [Suspect]
     Active Substance: RISPERIDONE
     Indication: SCHIZOPHRENIA
     Route: 030
     Dates: start: 20160314

REACTIONS (2)
  - Drug dose omission [Unknown]
  - Product reconstitution quality issue [Unknown]

NARRATIVE: CASE EVENT DATE: 20170607
